FAERS Safety Report 10751864 (Version 2)
Quarter: 2016Q1

REPORT INFORMATION
  Report Type: Spontaneous
  Country: US (occurrence: US)
  Receive Date: 20150130
  Receipt Date: 20160209
  Transmission Date: 20160525
  Serious: No
  Sender: FDA-Public Use
  Company Number: US-ENDO PHARMACEUTICALS INC.-FORT20140112

PATIENT
  Sex: Male

DRUGS (2)
  1. FORTESTA [Suspect]
     Active Substance: TESTOSTERONE
     Indication: PRODUCT USED FOR UNKNOWN INDICATION
     Route: 061
  2. FORTESTA [Suspect]
     Active Substance: TESTOSTERONE
     Route: 061
     Dates: start: 2013

REACTIONS (7)
  - Underdose [Not Recovered/Not Resolved]
  - Application site erythema [Recovered/Resolved]
  - Expired product administered [Recovered/Resolved]
  - Drug administered at inappropriate site [Recovered/Resolved]
  - Drug effect decreased [Not Recovered/Not Resolved]
  - Application site irritation [Recovered/Resolved]
  - Wrong technique in product usage process [Recovered/Resolved]

NARRATIVE: CASE EVENT DATE: 2013
